FAERS Safety Report 17539651 (Version 1)
Quarter: 2020Q1

REPORT INFORMATION
  Report Type: Spontaneous
  Country: IT (occurrence: GB)
  Receive Date: 20200313
  Receipt Date: 20200313
  Transmission Date: 20200409
  Serious: Yes (Other)
  Sender: FDA-Public Use
  Company Number: IT-SUNOVION-2020SUN000889

PATIENT

DRUGS (6)
  1. LATUDA [Suspect]
     Active Substance: LURASIDONE HYDROCHLORIDE
     Dosage: 55.5 MG
     Route: 065
     Dates: start: 20191214
  2. LATUDA [Suspect]
     Active Substance: LURASIDONE HYDROCHLORIDE
     Dosage: 37 MG
     Route: 065
     Dates: start: 20191207, end: 20191214
  3. FLUOXETINE HYDROCHLORIDE. [Concomitant]
     Active Substance: FLUOXETINE HYDROCHLORIDE
  4. OLANZAPINE. [Concomitant]
     Active Substance: OLANZAPINE
  5. LITHIUM CARBONATE. [Concomitant]
     Active Substance: LITHIUM CARBONATE
  6. LATUDA [Suspect]
     Active Substance: LURASIDONE HYDROCHLORIDE
     Indication: BIPOLAR I DISORDER
     Route: 065
     Dates: end: 20200121

REACTIONS (7)
  - Off label use [Recovered/Resolved]
  - Protrusion tongue [Unknown]
  - Depressed mood [Unknown]
  - Restlessness [Unknown]
  - Suicidal ideation [Unknown]
  - Tardive dyskinesia [Not Recovered/Not Resolved]
  - Akathisia [Not Recovered/Not Resolved]

NARRATIVE: CASE EVENT DATE: 20191231
